FAERS Safety Report 7403584-4 (Version None)
Quarter: 2011Q2

REPORT INFORMATION
  Report Type: 
  Country: None (occurrence: None)
  Receive Date: 20110408
  Receipt Date: 20110325
  Transmission Date: 20111010
  Serious: Yes (Disabling, Other)
  Sender: FDA-Public Use
  Company Number: US-CELGENEUS-163-20785-11033196

PATIENT
  Sex: Female
  Weight: 83 kg

DRUGS (2)
  1. THALOMID [Suspect]
     Dosage: 100 MILLIGRAM
     Route: 048
     Dates: start: 20101230
  2. IRON [Suspect]
     Route: 065

REACTIONS (3)
  - MELAENA [None]
  - OEDEMA [None]
  - PARAESTHESIA [None]
